FAERS Safety Report 11639220 (Version 1)
Quarter: 2015Q4

REPORT INFORMATION
  Report Type: Report from Study
  Country: AT (occurrence: AT)
  Receive Date: 20151019
  Receipt Date: 20151019
  Transmission Date: 20160304
  Serious: Yes (Hospitalization)
  Sender: FDA-Public Use
  Company Number: AT-ROCHE-1559758

PATIENT
  Age: 72 Year
  Sex: Female

DRUGS (11)
  1. SORTIS [Concomitant]
     Active Substance: ATORVASTATIN
  2. SEVIKAR [Concomitant]
     Active Substance: AMLODIPINE BESYLATE\OLMESARTAN MEDOXOMIL
  3. URSOFALK [Concomitant]
     Active Substance: URSODIOL
  4. PLAVIX [Concomitant]
     Active Substance: CLOPIDOGREL BISULFATE
  5. LYRICA [Concomitant]
     Active Substance: PREGABALIN
  6. PREDNISOLONE. [Suspect]
     Active Substance: PREDNISOLONE
     Indication: RHEUMATOID ARTHRITIS
     Route: 065
  7. PANTOLOC [Concomitant]
     Active Substance: PANTOPRAZOLE SODIUM
  8. LEFLUNOMIDE. [Suspect]
     Active Substance: LEFLUNOMIDE
     Indication: RHEUMATOID ARTHRITIS
     Route: 065
     Dates: start: 200808
  9. HALCION [Concomitant]
     Active Substance: TRIAZOLAM
  10. CONCOR [Concomitant]
     Active Substance: BISOPROLOL FUMARATE
  11. RITUXIMAB [Suspect]
     Active Substance: RITUXIMAB
     Indication: RHEUMATOID ARTHRITIS
     Route: 042
     Dates: start: 201103, end: 201407

REACTIONS (2)
  - Post herpetic neuralgia [Not Recovered/Not Resolved]
  - Herpes zoster [Recovered/Resolved]

NARRATIVE: CASE EVENT DATE: 20150101
